FAERS Safety Report 16610469 (Version 1)
Quarter: 2019Q3

REPORT INFORMATION
  Report Type: Spontaneous
  Country: CN (occurrence: CN)
  Receive Date: 20190722
  Receipt Date: 20190722
  Transmission Date: 20191004
  Serious: Yes (Life-Threatening)
  Sender: FDA-Public Use
  Company Number: CN-NOVOPROD-674335

PATIENT
  Sex: Male
  Weight: 45.9 kg

DRUGS (3)
  1. THIOCTIC ACID A.G. [Concomitant]
     Indication: DIABETIC NEUROPATHY
     Dosage: 0.45 G, QD
     Route: 042
     Dates: start: 20190617, end: 20190626
  2. NOVORAPID [Suspect]
     Active Substance: INSULIN ASPART
     Dosage: UNK (DOSE OF INSULIN WAS ADJUSTED)
     Route: 058
     Dates: end: 20190626
  3. NOVORAPID [Suspect]
     Active Substance: INSULIN ASPART
     Indication: TYPE 1 DIABETES MELLITUS
     Dosage: 5 IU, QD (0.5 IU, TEN TIMES A DAY)
     Route: 058
     Dates: start: 20190621

REACTIONS (2)
  - Shock [Recovered/Resolved]
  - Hyperinsulinaemic hypoglycaemia [Recovered/Resolved]

NARRATIVE: CASE EVENT DATE: 20190622
